FAERS Safety Report 21681901 (Version 1)
Quarter: 2022Q4

REPORT INFORMATION
  Report Type: Spontaneous
  Country: US (occurrence: None)
  Receive Date: 20221202
  Receipt Date: 20221202
  Transmission Date: 20230113
  Serious: Yes (Hospitalization)
  Sender: FDA-Public Use
  Company Number: None

PATIENT
  Age: 77 Year
  Sex: Female
  Weight: 44.1 kg

DRUGS (2)
  1. ATEZOLIZUMAB [Suspect]
     Active Substance: ATEZOLIZUMAB
  2. BEVACIZUMAB [Suspect]
     Active Substance: BEVACIZUMAB

REACTIONS (6)
  - Stomatitis [None]
  - Dehydration [None]
  - Non-cardiac chest pain [None]
  - Weight decreased [None]
  - Magnetic resonance imaging head abnormal [None]
  - Therapy interrupted [None]

NARRATIVE: CASE EVENT DATE: 20221201
